FAERS Safety Report 5832938-2 (Version None)
Quarter: 2008Q3

REPORT INFORMATION
  Report Type: 
  Country: None (occurrence: None)
  Receive Date: 20080730
  Receipt Date: 20080722
  Transmission Date: 20090109
  Serious: Yes (Hospitalization, Other)
  Sender: FDA-Public Use
  Company Number: 2003JP007340

PATIENT
  Age: 52 Year
  Sex: Male

DRUGS (9)
  1. PROGRAF [Suspect]
     Indication: RENAL TRANSPLANT
     Dosage: ORAL
     Route: 048
     Dates: start: 20010801, end: 20030519
  2. PHENOBAL(PHENOBARBITAL) PER ORAL NOS [Suspect]
     Dosage: ORAL
     Route: 048
     Dates: start: 20030325, end: 20030512
  3. AMLODIPINE BESYLATE [Concomitant]
  4. LOSARTAN POTASSIUM [Concomitant]
  5. URINORM (BENZBROMARONE) [Concomitant]
  6. ETODOLAC [Concomitant]
  7. LASIX [Concomitant]
  8. METHYLPREDNISOLONE [Concomitant]
  9. AZATHIOPRINE [Concomitant]

REACTIONS (14)
  - APPLICATION SITE ERYTHEMA [None]
  - BLOOD BETA-D-GLUCAN INCREASED [None]
  - BRAIN NEOPLASM [None]
  - CONVULSION [None]
  - CYTOMEGALOVIRUS ANTIGEN [None]
  - CYTOMEGALOVIRUS ANTIGEN POSITIVE [None]
  - DERMATITIS [None]
  - LOSS OF CONSCIOUSNESS [None]
  - LYMPHOMA [None]
  - NO THERAPEUTIC RESPONSE [None]
  - OSTEITIS [None]
  - RADIATION SKIN INJURY [None]
  - STAPHYLOCOCCAL BACTERAEMIA [None]
  - TOXIC EPIDERMAL NECROLYSIS [None]
